FAERS Safety Report 20136022 (Version 1)
Quarter: 2021Q4

REPORT INFORMATION
  Report Type: Spontaneous
  Country: None (occurrence: US)
  Receive Date: 20211201
  Receipt Date: 20211201
  Transmission Date: 20220303
  Serious: Yes (Hospitalization)
  Sender: FDA-Public Use
  Company Number: US-Oxford Pharmaceuticals, LLC-2122546

PATIENT
  Age: 16 Year
  Sex: Female

DRUGS (3)
  1. LORAZEPAM [Suspect]
     Active Substance: LORAZEPAM
     Indication: Catatonia
     Route: 048
  2. OLANZAPINE [Concomitant]
     Active Substance: OLANZAPINE
  3. CEPHALEXIN [Concomitant]
     Active Substance: CEPHALEXIN

REACTIONS (3)
  - Gait disturbance [Recovered/Resolved]
  - Catatonia [Recovered/Resolved]
  - Condition aggravated [Recovered/Resolved]
